FAERS Safety Report 5720313-0 (Version None)
Quarter: 2008Q2

REPORT INFORMATION
  Report Type: 
  Country: None (occurrence: None)
  Receive Date: 20080428
  Receipt Date: 20080415
  Transmission Date: 20081010
  Serious: Yes (Hospitalization, Other)
  Sender: FDA-Public Use
  Company Number: JP-ROCHE-560885

PATIENT
  Age: 39 Year
  Sex: Male

DRUGS (5)
  1. MYCOPHENOLATE MOFETIL [Suspect]
     Route: 065
  2. MYCOPHENOLATE MOFETIL [Suspect]
     Route: 065
  3. BASILIXIMAB [Suspect]
     Route: 065
  4. TACROLIMUS [Suspect]
     Route: 065
  5. METHYLPREDNISOLONE [Suspect]
     Route: 065

REACTIONS (3)
  - CYTOMEGALOVIRUS ANTIGEN POSITIVE [None]
  - KIDNEY TRANSPLANT REJECTION [None]
  - STAPHYLOCOCCAL INFECTION [None]
